FAERS Safety Report 11355866 (Version 1)
Quarter: 2015Q3

REPORT INFORMATION
  Report Type: Spontaneous
  Country: US (occurrence: US)
  Receive Date: 20150807
  Receipt Date: 20150807
  Transmission Date: 20151125
  Serious: No
  Sender: FDA-Public Use
  Company Number: US-ABBVIE-15P-163-1419929-00

PATIENT
  Sex: Female

DRUGS (5)
  1. VITAMINS [Concomitant]
     Active Substance: VITAMINS
     Indication: PRODUCT USED FOR UNKNOWN INDICATION
     Dosage: FIRST THING IN THE A.M
  2. COLOSTRUM [Concomitant]
     Indication: PRODUCT USED FOR UNKNOWN INDICATION
  3. SALT [Concomitant]
     Active Substance: SODIUM CHLORIDE
     Indication: PRODUCT USED FOR UNKNOWN INDICATION
     Dosage: FIRST THING IN THE A.M
  4. VIEKIRA PAK [Suspect]
     Active Substance: DASABUVIR\OMBITASVIR\PARITAPREVIR\RITONAVIR
     Indication: PRODUCT USED FOR UNKNOWN INDICATION
     Route: 048
  5. FISH OIL [Concomitant]
     Active Substance: FISH OIL
     Indication: PRODUCT USED FOR UNKNOWN INDICATION

REACTIONS (5)
  - Irritable bowel syndrome [Unknown]
  - Exposure to mould [Unknown]
  - Unevaluable event [Unknown]
  - Feeling abnormal [Unknown]
  - Haematemesis [Unknown]
